FAERS Safety Report 14229656 (Version 1)
Quarter: 2017Q4

REPORT INFORMATION
  Report Type: Other
  Country: US (occurrence: US)
  Receive Date: 20171128
  Receipt Date: 20171128
  Transmission Date: 20180321
  Serious: Yes (Other)
  Sender: FDA-Public Use
  Company Number: US-VELOXIS PHARMACEUTICALS-2036136

PATIENT
  Age: 23 Year
  Sex: Male

DRUGS (7)
  1. THYMOGLOBULIN [Suspect]
     Active Substance: LAPINE T-LYMPHOCYTE IMMUNE GLOBULIN
  2. ENVARSUS XR [Suspect]
     Active Substance: TACROLIMUS
     Indication: PROPHYLAXIS AGAINST GRAFT VERSUS HOST DISEASE
  3. METHOTREXATE. [Suspect]
     Active Substance: METHOTREXATE
  4. FLUDARABINE [Suspect]
     Active Substance: FLUDARABINE PHOSPHATE
  5. BUSULFAN. [Suspect]
     Active Substance: BUSULFAN
  6. BORTEZOMIBE [Concomitant]
     Active Substance: BORTEZOMIB
  7. BRENTUXIMAB [Concomitant]
     Active Substance: BRENTUXIMAB VEDOTIN

REACTIONS (2)
  - Hodgkin^s disease nodular sclerosis recurrent [Recovering/Resolving]
  - Intentional product use issue [Unknown]
